FAERS Safety Report 4539590-7 (Version None)
Quarter: 2004Q4

REPORT INFORMATION
  Report Type: 
  Country: None (occurrence: None)
  Receive Date: 20041227
  Receipt Date: 20041227
  Transmission Date: 20050328
  Serious: No
  Sender: FDA-Public Use
  Company Number: None

PATIENT
  Age: 24 Year
  Sex: Female
  Weight: 65.7716 kg

DRUGS (1)
  1. SEPTOCAINE [Suspect]
     Indication: TOOTH DISORDER
     Dosage: ONE TIME ONLY
     Dates: start: 20030301

REACTIONS (15)
  - ANAESTHETIC COMPLICATION [None]
  - ASTHENIA [None]
  - DEPRESSION [None]
  - DYSKINESIA [None]
  - FACIAL PAIN [None]
  - FATIGUE [None]
  - HYPERTENSION [None]
  - HYPOAESTHESIA [None]
  - JAW DISORDER [None]
  - PAIN [None]
  - PALPITATIONS [None]
  - PULMONARY HYPERTENSION [None]
  - SINUS DISORDER [None]
  - SWELLING [None]
  - TENDERNESS [None]
